FAERS Safety Report 21222866 (Version 1)
Quarter: 2022Q3

REPORT INFORMATION
  Report Type: Spontaneous
  Country: US (occurrence: US)
  Receive Date: 20220817
  Receipt Date: 20220817
  Transmission Date: 20221027
  Serious: No
  Sender: FDA-Public Use
  Company Number: US-BAYER-2022A114200

PATIENT
  Age: 40 Year
  Sex: Male

DRUGS (2)
  1. KOGENATE FS [Suspect]
     Active Substance: ANTIHEMOPHILIC FACTOR, HUMAN RECOMBINANT
     Dosage: 2488 IU
  2. KOGENATE FS [Suspect]
     Active Substance: ANTIHEMOPHILIC FACTOR, HUMAN RECOMBINANT
     Dosage: 4975 IU

REACTIONS (1)
  - Product dose omission issue [None]

NARRATIVE: CASE EVENT DATE: 20220808
